FAERS Safety Report 7798789-7 (Version None)
Quarter: 2011Q4

REPORT INFORMATION
  Report Type: 
  Country: None (occurrence: None)
  Receive Date: 20111005
  Receipt Date: 20111005
  Transmission Date: 20120403
  Serious: Yes (Hospitalization)
  Sender: FDA-Public Use
  Company Number: None

PATIENT
  Sex: Male
  Weight: 131.4 kg

DRUGS (4)
  1. FLUOROURACIL [Suspect]
     Dosage: 5420 MG
     Dates: start: 20110928, end: 20110930
  2. BEVACIZUMAB (RHUMAB VEGF) [Suspect]
     Dosage: 655 MG
     Dates: end: 20110928
  3. IRINOTECAN HCL [Suspect]
     Dosage: 363 MG
     Dates: end: 20110928
  4. LEUCOVORIN CALCIUM [Suspect]
     Dosage: 968 MG
     Dates: end: 20110928

REACTIONS (3)
  - MYOFASCIAL PAIN SYNDROME [None]
  - MEDICAL DEVICE PAIN [None]
  - MUSCULOSKELETAL PAIN [None]
